FAERS Safety Report 11004278 (Version 1)
Quarter: 2015Q2

REPORT INFORMATION
  Report Type: Spontaneous
  Country: IT (occurrence: None)
  Receive Date: 20150407
  Receipt Date: 20150407
  Transmission Date: 20150821
  Serious: Yes (Other)
  Sender: FDA-Public Use
  Company Number: 2806890

PATIENT
  Age: 46 Year
  Sex: Female

DRUGS (3)
  1. CARDIOASPIRIN [Concomitant]
     Active Substance: ASPIRIN
  2. KOCEFAN [Suspect]
     Active Substance: CEFTRIAXONE SODIUM
     Route: 030
     Dates: start: 20150116, end: 20150116
  3. CEFTRIAXONE SODIUM. [Suspect]
     Active Substance: CEFTRIAXONE SODIUM
     Indication: PRODUCT USED FOR UNKNOWN INDICATION
     Route: 030
     Dates: start: 20150116, end: 20150116

REACTIONS (2)
  - Syncope [None]
  - Erythema [None]

NARRATIVE: CASE EVENT DATE: 20150116
